FAERS Safety Report 5296028-2 (Version None)
Quarter: 2007Q2

REPORT INFORMATION
  Report Type: 
  Country: None (occurrence: None)
  Receive Date: 20070406
  Receipt Date: 20070321
  Transmission Date: 20071010
  Serious: Yes (Death)
  Sender: FDA-Public Use
  Company Number: 239334

PATIENT
  Age: 72 Year
  Sex: Female

DRUGS (2)
  1. TRASTUZUMAB [Suspect]
     Indication: BREAST CANCER METASTATIC
     Dosage: 2 MG/KG, UNK, INTRAVENOUS
     Route: 042
     Dates: start: 20061114
  2. LAPATINIB (LAPATINIB DITOSYLATE) [Suspect]
     Indication: BREAST CANCER METASTATIC
     Dosage: 1000 MG, QD, ORAL
     Route: 048
     Dates: start: 20061114, end: 20061206

REACTIONS (6)
  - BLOOD BILIRUBIN INCREASED [None]
  - BREAST CANCER METASTATIC [None]
  - DIARRHOEA [None]
  - EJECTION FRACTION DECREASED [None]
  - LIVER DISORDER [None]
  - MALIGNANT NEOPLASM PROGRESSION [None]
